FAERS Safety Report 6452703-5 (Version None)
Quarter: 2009Q4

REPORT INFORMATION
  Report Type: 
  Country: None (occurrence: None)
  Receive Date: 20091123
  Receipt Date: 20091123
  Transmission Date: 20100525
  Serious: Yes (Death)
  Sender: FDA-Public Use
  Company Number: None

PATIENT
  Age: 35 Year
  Sex: Female
  Weight: 149.687 kg

DRUGS (1)
  1. FEMCON FE [Suspect]
     Indication: CONTRACEPTION
     Dosage: 0.4MG/35MCG ONCE QD PO
     Route: 048
     Dates: start: 20070701, end: 20080101

REACTIONS (3)
  - DEEP VEIN THROMBOSIS [None]
  - PULMONARY EMBOLISM [None]
  - SURGERY [None]
